FAERS Safety Report 8949650 (Version 2)
Quarter: 2012Q4

REPORT INFORMATION
  Report Type: 
  Country: BR (occurrence: BR)
  Receive Date: 20121206
  Receipt Date: 20121217
  Transmission Date: 20130627
  Serious: Yes (Other)
  Sender: FDA-Public Use
  Company Number: BR-PFIZER INC-2012304515

PATIENT
  Age: 75 Year
  Sex: Female

DRUGS (3)
  1. LYRICA [Suspect]
     Indication: NEUROPATHIC PAIN
     Dosage: 75 mg, 1x/day
     Route: 048
     Dates: start: 2010
  2. LYRICA [Suspect]
     Dosage: 75 mg, 2x/day in the morning and at night
     Route: 048
     Dates: end: 2012
  3. ALENTHUS XR [Concomitant]

REACTIONS (11)
  - Renal pain [Unknown]
  - Oedema peripheral [Not Recovered/Not Resolved]
  - Erythema [Recovering/Resolving]
  - Feeling hot [Recovering/Resolving]
  - Blister [Recovering/Resolving]
  - Pollakiuria [Not Recovered/Not Resolved]
  - Constipation [Unknown]
  - Hypersensitivity [Not Recovered/Not Resolved]
  - Tremor [Not Recovered/Not Resolved]
  - Logorrhoea [Unknown]
  - Drug ineffective [Unknown]
